FAERS Safety Report 5241145-6 (Version None)
Quarter: 2007Q1

REPORT INFORMATION
  Report Type: 
  Country: None (occurrence: None)
  Receive Date: 20070220
  Receipt Date: 20070209
  Transmission Date: 20070707
  Serious: Yes (Hospitalization)
  Sender: FDA-Public Use
  Company Number: JP-JNJFOC-20061105630

PATIENT
  Sex: Male
  Weight: 69 kg

DRUGS (16)
  1. BLINDED; INFLIXIMAB, RECOMBINANT [Suspect]
     Route: 042
  2. BLINDED; INFLIXIMAB, RECOMBINANT [Suspect]
     Indication: COLITIS ULCERATIVE
     Route: 042
  3. PLACEBO [Suspect]
     Route: 042
  4. PLACEBO [Suspect]
     Indication: COLITIS ULCERATIVE
     Route: 042
  5. ALBUMIN TANNATE [Concomitant]
     Route: 048
  6. ALBUMIN TANNATE [Concomitant]
     Route: 048
  7. ALBUMIN TANNATE [Concomitant]
     Indication: COLITIS ULCERATIVE
     Route: 048
  8. PENTASA [Concomitant]
     Indication: COLITIS ULCERATIVE
     Dosage: 2250 MG DAILY; INITIATED BEFORE 22-JUN-2004, ORAL
     Route: 048
  9. BIOFERMIN [Concomitant]
     Indication: COLITIS ULCERATIVE
     Dosage: START DATE WAS BEFORE 26-JUL-06
     Route: 048
  10. GASTER D [Concomitant]
     Indication: GASTRITIS
     Dosage: 40 MG DAILY, INITIATED BEFORE 12-SEP-2006, ORAL
     Route: 048
  11. LEUKERIN [Concomitant]
     Route: 048
  12. LEUKERIN [Concomitant]
     Route: 048
  13. LEUKERIN [Concomitant]
     Route: 048
  14. LEUKERIN [Concomitant]
     Route: 048
  15. LEUKERIN [Concomitant]
     Route: 048
  16. LEUKERIN [Concomitant]
     Indication: COLITIS ULCERATIVE
     Dosage: INITIATED PRIOR TO 22-JUN-04
     Route: 048

REACTIONS (2)
  - COLITIS ULCERATIVE [None]
  - CYTOMEGALOVIRUS INFECTION [None]
